FAERS Safety Report 7570267-X (Version None)
Quarter: 2011Q2

REPORT INFORMATION
  Report Type: 
  Country: None (occurrence: None)
  Receive Date: 20110624
  Receipt Date: 20110621
  Transmission Date: 20111010
  Serious: Yes (Hospitalization)
  Sender: FDA-Public Use
  Company Number: US-SANOFI-AVENTIS-2011SA034031

PATIENT
  Age: 60 Year
  Sex: Male
  Weight: 127.3 kg

DRUGS (64)
  1. ASPIRIN [Concomitant]
     Route: 048
     Dates: start: 20000101
  2. ASPIRIN [Concomitant]
     Route: 048
     Dates: start: 20110506, end: 20110520
  3. NEXIUM [Concomitant]
     Route: 042
     Dates: start: 20110423, end: 20110423
  4. ANCEF [Concomitant]
     Route: 042
     Dates: start: 20110505, end: 20110506
  5. LOVENOX [Concomitant]
     Route: 058
     Dates: start: 20110506, end: 20110509
  6. NIFEREX FORTE [Concomitant]
     Route: 048
     Dates: start: 20110509, end: 20110509
  7. K-DUR [Concomitant]
     Route: 048
     Dates: start: 20110505, end: 20110509
  8. K-DUR [Concomitant]
     Route: 048
     Dates: start: 20110522
  9. PEPCID [Concomitant]
     Route: 048
     Dates: start: 20110421, end: 20110423
  10. MAGNESIUM OXIDE/VITAMINS NOS/ZINC SULFATE [Concomitant]
     Route: 048
     Dates: start: 20110423, end: 20110423
  11. LOPRESSOR [Concomitant]
     Route: 048
     Dates: start: 20110427, end: 20110427
  12. LOPRESSOR [Concomitant]
     Route: 048
     Dates: start: 20110522
  13. FEOSOL [Concomitant]
     Route: 048
     Dates: start: 20110509, end: 20110509
  14. LORTAB [Concomitant]
     Route: 048
     Dates: start: 20110509
  15. DRONEDARONE HCL [Suspect]
     Indication: ATRIAL FIBRILLATION
     Route: 065
     Dates: start: 20110429, end: 20110503
  16. AVALIDE [Concomitant]
     Dosage: 300-25 MG DAILY DOSE
     Route: 048
     Dates: start: 20100101, end: 20110420
  17. AZITHROMYCIN [Concomitant]
     Route: 042
     Dates: start: 20110420, end: 20110423
  18. HYDROCHLOROTHIAZIDE [Concomitant]
     Route: 048
     Dates: start: 20110423, end: 20110504
  19. PLAVIX [Concomitant]
     Route: 048
     Dates: start: 20110506, end: 20110525
  20. NITROGLYCERIN [Concomitant]
     Dosage: DOSE:0.5 INCH(ES)
     Route: 061
     Dates: start: 20110503, end: 20110505
  21. PROVENTIL [Concomitant]
     Route: 055
     Dates: start: 20110420, end: 20110423
  22. ATROVENT [Concomitant]
     Route: 055
     Dates: start: 20110420, end: 20110423
  23. PROCARDIA XL [Concomitant]
     Route: 048
     Dates: start: 20110421, end: 20110421
  24. SURFAK [Concomitant]
     Route: 048
     Dates: start: 20110506, end: 20110509
  25. FLEXERIL [Concomitant]
     Route: 048
     Dates: start: 20110508, end: 20110509
  26. BLINDED THERAPY [Suspect]
     Route: 065
     Dates: start: 20110506, end: 20110522
  27. CARVEDILOL [Concomitant]
     Route: 048
     Dates: start: 20100101, end: 20110420
  28. AVAPRO [Concomitant]
     Route: 048
     Dates: start: 20110421, end: 20110504
  29. XANAX [Concomitant]
     Route: 048
     Dates: start: 20110504, end: 20110504
  30. LASIX [Concomitant]
     Route: 048
     Dates: start: 20110507, end: 20110509
  31. BLINDED THERAPY [Suspect]
     Route: 065
     Dates: start: 20110429, end: 20110503
  32. AMBIEN [Concomitant]
     Route: 048
     Dates: start: 20000101
  33. TYLENOL-500 [Concomitant]
     Route: 048
     Dates: start: 20000101
  34. ROCEPHIN [Concomitant]
     Route: 042
     Dates: start: 20110421, end: 20110422
  35. NEXIUM [Concomitant]
     Route: 048
     Dates: start: 20110423, end: 20110505
  36. PEPCID [Concomitant]
     Route: 048
     Dates: start: 20110506, end: 20110520
  37. AVAPRO [Concomitant]
     Route: 048
     Dates: start: 20110522
  38. AUGMENTIN '125' [Concomitant]
     Route: 048
     Dates: start: 20110423, end: 20110427
  39. ALBUTEROL SULFATE AUTOHALER [Concomitant]
     Dosage: 2 PUFFS DOSE:2 PUFF(S)
     Route: 055
     Dates: start: 20110423, end: 20110426
  40. COREG [Concomitant]
     Route: 048
     Dates: start: 20110423, end: 20110521
  41. LOPRESSOR [Concomitant]
     Route: 042
     Dates: start: 20110427, end: 20110427
  42. MAGNESIUM SULFATE [Concomitant]
     Route: 042
     Dates: start: 20110505, end: 20110505
  43. MORPHINE [Concomitant]
     Route: 042
     Dates: start: 20110505, end: 20110506
  44. TERAZOSIN HCL [Concomitant]
     Route: 048
     Dates: start: 20020529, end: 20110504
  45. CARVEDILOL [Concomitant]
     Route: 048
     Dates: start: 20100101, end: 20110420
  46. TYLENOL-500 [Concomitant]
     Route: 048
     Dates: start: 20110420, end: 20110420
  47. LOVENOX [Concomitant]
     Route: 058
     Dates: start: 20110421, end: 20110421
  48. ADVAIR DISKUS 100/50 [Concomitant]
     Dosage: 500/100 MG TOTAL DAILY DOSE
     Route: 055
     Dates: start: 20110421, end: 20110426
  49. PNEUMOCOCCAL VACCINE [Concomitant]
     Route: 030
     Dates: start: 20110421, end: 20110421
  50. SODIUM CHLORIDE [Concomitant]
     Dosage: 75 ML/HR CONTINUOUS INFUSION
     Route: 041
     Dates: start: 20110421, end: 20110422
  51. LOPRESSOR [Concomitant]
     Route: 040
     Dates: start: 20110522, end: 20110523
  52. LANTUS [Concomitant]
     Dosage: DOSE:10 UNIT(S)
     Route: 058
     Dates: start: 20110506, end: 20110508
  53. INSULIN LISPRO [Concomitant]
     Dosage: UNITS AS NEEDED PER SLIDING SCALE
     Route: 058
     Dates: start: 20110506, end: 20110508
  54. VANCOMYCIN [Concomitant]
     Route: 042
     Dates: start: 20110505, end: 20110505
  55. NORCO [Concomitant]
     Route: 048
     Dates: start: 20110506, end: 20110509
  56. REGULAR INSULIN [Concomitant]
     Dosage: 0.5 UNITS/HOUR
     Route: 042
     Dates: start: 20110505, end: 20110506
  57. BLINDED THERAPY [Suspect]
     Route: 065
     Dates: start: 20110506, end: 20110522
  58. ANDROGEL [Concomitant]
     Dosage: 25/2.5 GM DAILY DOSE
     Route: 061
     Dates: start: 20100101
  59. POTASSIUM CHLORIDE [Concomitant]
     Route: 048
     Dates: start: 20000101, end: 20110509
  60. ROBITUSSIN DM /USA/ [Concomitant]
     Route: 048
     Dates: start: 20110421, end: 20110423
  61. LOPRESSOR [Concomitant]
     Route: 048
     Dates: start: 20110506, end: 20110509
  62. ASCORBIC ACID [Concomitant]
     Route: 048
     Dates: start: 20110506, end: 20110509
  63. ZOFRAN [Concomitant]
     Route: 042
     Dates: start: 20110506, end: 20110506
  64. DEXTROSE 5% [Concomitant]
     Dosage: 50 ML/HR
     Route: 042
     Dates: start: 20110505, end: 20110505

REACTIONS (1)
  - ATRIAL FIBRILLATION [None]
